FAERS Safety Report 9771449 (Version 1)
Quarter: 2013Q4

REPORT INFORMATION
  Report Type: Spontaneous
  Country: JP (occurrence: JP)
  Receive Date: 20131219
  Receipt Date: 20131219
  Transmission Date: 20140711
  Serious: No
  Sender: FDA-Public Use
  Company Number: JP-PFIZER INC-2013362724

PATIENT
  Age: 81 Year
  Sex: Male

DRUGS (11)
  1. ANCARON [Suspect]
     Indication: VENTRICULAR TACHYCARDIA
     Dosage: 100 MG, TWICE DAILY
     Route: 048
     Dates: start: 201110
  2. WARFARIN [Concomitant]
     Dosage: UNK
     Dates: start: 201110
  3. CONIEL [Concomitant]
     Dosage: UNK
     Dates: start: 201110
  4. ONON [Concomitant]
     Dosage: UNK
     Dates: start: 201110
  5. TAKEPRON OD [Concomitant]
     Dosage: UNK
     Dates: start: 201110
  6. MAINTATE [Concomitant]
     Dosage: UNK
     Dates: start: 201110
  7. LIPITOR [Concomitant]
     Dosage: UNK
     Dates: start: 201110
  8. TANATRIL [Concomitant]
     Dosage: UNK
     Dates: start: 201110
  9. BAYASPIRIN [Concomitant]
     Dosage: UNK
     Dates: start: 201110
  10. MAGLAX [Concomitant]
     Dosage: UNK
     Dates: start: 201110
  11. FLUTIDE [Concomitant]
     Dosage: UNK
     Dates: start: 201110

REACTIONS (1)
  - Liver disorder [Unknown]
